FAERS Safety Report 20838573 (Version 2)
Quarter: 2022Q2

REPORT INFORMATION
  Report Type: Spontaneous
  Country: FR (occurrence: FR)
  Receive Date: 20220517
  Receipt Date: 20220530
  Transmission Date: 20220721
  Serious: Yes (Other)
  Sender: FDA-Public Use
  Company Number: FR-PFIZER INC-202200705225

PATIENT
  Age: 85 Year
  Sex: Female
  Weight: 65 kg

DRUGS (8)
  1. IBRANCE [Suspect]
     Active Substance: PALBOCICLIB
     Indication: Breast cancer female
     Dosage: 125 MG, DAILY
     Route: 048
     Dates: start: 20220214, end: 20220414
  2. IBRANCE [Suspect]
     Active Substance: PALBOCICLIB
     Indication: Metastases to lung
     Dosage: UNK
     Dates: start: 20220513
  3. IBRANCE [Suspect]
     Active Substance: PALBOCICLIB
     Indication: Metastases to lymph nodes
  4. ASPIRIN [Concomitant]
     Active Substance: ASPIRIN
     Dosage: 75 MG, 1X/DAY
     Route: 048
  5. LESCOL [Concomitant]
     Active Substance: FLUVASTATIN SODIUM
     Dosage: 40 MG, 1X/DAY
     Route: 048
  6. LEVOTHYROXINE SODIUM [Concomitant]
     Active Substance: LEVOTHYROXINE SODIUM
     Dosage: 25 UG, 1X/DAY
     Route: 048
  7. LANSOPRAZOLE [Concomitant]
     Active Substance: LANSOPRAZOLE
     Dosage: 30 MG, 1X/DAY
     Route: 048
  8. BETAHISTINE [Concomitant]
     Active Substance: BETAHISTINE
     Dosage: UNK, 2X/DAY

REACTIONS (1)
  - Hepatic cytolysis [Recovered/Resolved]

NARRATIVE: CASE EVENT DATE: 20220414
